FAERS Safety Report 13450581 (Version 1)
Quarter: 2017Q2

REPORT INFORMATION
  Report Type: Spontaneous
  Country: TR (occurrence: TR)
  Receive Date: 20170418
  Receipt Date: 20170418
  Transmission Date: 20170830
  Serious: Yes (Life-Threatening, Hospitalization)
  Sender: FDA-Public Use
  Company Number: TR-JNJFOC-20170417099

PATIENT
  Age: 12 Month
  Sex: Male
  Weight: 10 kg

DRUGS (1)
  1. TETRAHYDROZOLINE HYDROCHLORIDE. [Suspect]
     Active Substance: TETRAHYDROZOLINE HYDROCHLORIDE
     Indication: ACCIDENTAL EXPOSURE TO PRODUCT
     Dosage: ACCIDENTALLY DRANK ABOUT 8 ML 0.05% OF NASAL SOLUTION
     Route: 048

REACTIONS (9)
  - Fatigue [Recovered/Resolved]
  - Sinus bradycardia [Recovered/Resolved]
  - Apnoea [Recovered/Resolved]
  - Hypothermia [Recovered/Resolved]
  - Hyperhidrosis [Recovered/Resolved]
  - Accidental exposure to product by child [Recovered/Resolved]
  - Loss of consciousness [Recovered/Resolved]
  - Pallor [Recovered/Resolved]
  - Somnolence [Recovered/Resolved]
